FAERS Safety Report 5327403-5 (Version None)
Quarter: 2007Q2

REPORT INFORMATION
  Report Type: 
  Country: None (occurrence: None)
  Receive Date: 20070517
  Receipt Date: 20070511
  Transmission Date: 20071010
  Serious: Yes (Hospitalization)
  Sender: FDA-Public Use
  Company Number: HQWYE968503MAY07

PATIENT
  Sex: Female

DRUGS (4)
  1. PHENERGAN HCL [Suspect]
     Dosage: UNKNOWN
     Route: 065
  2. HYDROCODONE BITARTRATE [Suspect]
     Dosage: UNKNOWN
     Route: 065
  3. ZOLPIDEM [Suspect]
     Dosage: UNKNOWN
     Route: 065
  4. COPAXONE [Suspect]
     Indication: MULTIPLE SCLEROSIS
     Dosage: 20 MG, FREQUENCY NOT SPECIFIED
     Route: 058
     Dates: start: 20060716

REACTIONS (1)
  - MENTAL STATUS CHANGES [None]
